FAERS Safety Report 20102171 (Version 1)
Quarter: 2021Q4

REPORT INFORMATION
  Report Type: Spontaneous
  Country: US (occurrence: None)
  Receive Date: 20211123
  Receipt Date: 20211123
  Transmission Date: 20220303
  Serious: Yes (Hospitalization)
  Sender: FDA-Public Use
  Company Number: None

PATIENT
  Sex: Male
  Weight: 100.5 kg

DRUGS (2)
  1. CISPLATIN [Suspect]
     Active Substance: CISPLATIN
     Indication: Product used for unknown indication
     Dates: end: 20210722
  2. GEMCITABINE HYDROCHLORIDE [Suspect]
     Active Substance: GEMCITABINE HYDROCHLORIDE
     Indication: Product used for unknown indication
     Dates: end: 20210722

REACTIONS (13)
  - Hypoxia [None]
  - Mental status changes [None]
  - Confusional state [None]
  - Abnormal behaviour [None]
  - Oxygen saturation decreased [None]
  - Acute kidney injury [None]
  - Blood potassium increased [None]
  - Pulmonary embolism [None]
  - Pleural effusion [None]
  - Coronary artery disease [None]
  - Troponin increased [None]
  - Neutropenia [None]
  - Diverticulitis [None]

NARRATIVE: CASE EVENT DATE: 20210703
